FAERS Safety Report 12797255 (Version 1)
Quarter: 2016Q3

REPORT INFORMATION
  Report Type: Spontaneous
  Country: US (occurrence: US)
  Receive Date: 20160929
  Receipt Date: 20160929
  Transmission Date: 20161109
  Serious: Yes (Hospitalization)
  Sender: FDA-Public Use
  Company Number: None

PATIENT
  Age: 70 Year
  Sex: Male
  Weight: 75 kg

DRUGS (1)
  1. RITUXIMAB [Suspect]
     Active Substance: RITUXIMAB
     Route: 042
     Dates: start: 20160607, end: 20160607

REACTIONS (10)
  - Flushing [None]
  - Hypotension [None]
  - Hyperhidrosis [None]
  - Nausea [None]
  - Fatigue [None]
  - Diarrhoea [None]
  - Vomiting [None]
  - Dizziness [None]
  - Retching [None]
  - Oxygen saturation decreased [None]

NARRATIVE: CASE EVENT DATE: 20160607
